FAERS Safety Report 5536697-2 (Version None)
Quarter: 2007Q4

REPORT INFORMATION
  Report Type: 
  Country: None (occurrence: None)
  Receive Date: 20071206
  Receipt Date: 20070613
  Transmission Date: 20080405
  Serious: Yes (Hospitalization)
  Sender: FDA-Public Use
  Company Number: US-AMGEN-STX227578

PATIENT
  Sex: Female
  Weight: 60 kg

DRUGS (5)
  1. ENBREL [Suspect]
     Indication: RHEUMATOID ARTHRITIS
     Route: 058
     Dates: start: 19990601
  2. XANAX [Concomitant]
  3. LEVOTHYROXINE SODIUM [Concomitant]
  4. REGLAN [Concomitant]
  5. UNKNOWN [Concomitant]

REACTIONS (8)
  - BENIGN BREAST NEOPLASM [None]
  - BREAST CANCER [None]
  - CYSTITIS [None]
  - EYE PAIN [None]
  - FATIGUE [None]
  - OEDEMA PERIPHERAL [None]
  - ORAL CANDIDIASIS [None]
  - PNEUMONIA [None]
